FAERS Safety Report 14577414 (Version 3)
Quarter: 2018Q3

REPORT INFORMATION
  Report Type: Spontaneous
  Country: US (occurrence: US)
  Receive Date: 20180227
  Receipt Date: 20180827
  Transmission Date: 20181010
  Serious: Yes (Other)
  Sender: FDA-Public Use
  Company Number: US-PFIZER INC-2018076235

PATIENT
  Age: 66 Year
  Sex: Female
  Weight: 68 kg

DRUGS (17)
  1. NORCO [Concomitant]
     Active Substance: ACETAMINOPHEN\HYDROCODONE BITARTRATE
     Dosage: UNK UNK, 3X/DAY [(HYDROCODONE BITARTRATE 10MG)/(PARACETAMOL 300MG) TWO EVERY 8 HOURS,3 TIMES DAILY]
     Route: 048
  2. LYRICA [Suspect]
     Active Substance: PREGABALIN
     Indication: FIBROMYALGIA
     Dosage: 25 MG, 3X/DAY (3 TIMES DAILY EVERY 8 HOURS)
     Route: 048
  3. MORPHINE [Concomitant]
     Active Substance: MORPHINE
     Indication: BACK PAIN
     Dosage: 60 MG, 2X/DAY (EVERY 12 HOURS (TWICE A DAY))
     Route: 048
  4. CALCIUM [Concomitant]
     Active Substance: CALCIUM
     Dosage: 600 MG, UNK
  5. LYRICA [Suspect]
     Active Substance: PREGABALIN
     Indication: BACK PAIN
     Dosage: 25 MG, 1X/DAY (AT BEDTIME)
     Route: 048
     Dates: start: 2016
  6. QUETIAPINE. [Concomitant]
     Active Substance: QUETIAPINE
     Indication: SLEEP DISORDER
     Dosage: 25 MG, 1X/DAY (ONCE DAILY BY MOUTH AT BEDTIME)
     Route: 048
  7. TOPAMAX [Concomitant]
     Active Substance: TOPIRAMATE
     Indication: BACK PAIN
     Dosage: 100 MG, 2X/DAY
     Route: 048
  8. BROVANA [Concomitant]
     Active Substance: ARFORMOTEROL TARTRATE
     Indication: LUNG DISORDER
     Dosage: UNK, DAILY (2 NEBULIZER TREATMENTS DAILY)
     Dates: start: 2016
  9. DALIRESP [Concomitant]
     Active Substance: ROFLUMILAST
     Indication: LUNG DISORDER
     Dosage: 500 UG, 1X/DAY (ONCE DAILY BY MOUTH AT BEDTIME)
     Route: 048
     Dates: start: 2016
  10. SIMETHICONE (DIMETHICONE) [Concomitant]
     Active Substance: DIMETHICONE
     Indication: FLATULENCE
     Dosage: 80 MG, UNK
  11. BUDESONIDE. [Concomitant]
     Active Substance: BUDESONIDE
     Indication: LUNG DISORDER
     Dosage: UNK, DAILY (2 NEBULIZER TREATMENTS DAILY)
     Dates: start: 2016
  12. HYDROCODONE/ACETAMINOPHEN [Concomitant]
     Active Substance: ACETAMINOPHEN\HYDROCODONE
     Indication: PAIN
     Dosage: 2 DF, 3X/DAY  [HYDROCODONE:10MG]/[ACETAMINOPHEN: 325 MG]
     Route: 048
  13. LYRICA [Suspect]
     Active Substance: PREGABALIN
     Indication: PAIN IN EXTREMITY
     Dosage: 50 MG, 3X/DAY
     Route: 048
  14. MORPHINE [Concomitant]
     Active Substance: MORPHINE
     Indication: PAIN IN EXTREMITY
  15. METOPROLOL. [Concomitant]
     Active Substance: METOPROLOL
     Indication: HEART RATE
     Dosage: 25 MG, UNK
  16. DUONEB [Concomitant]
     Active Substance: ALBUTEROL SULFATE\IPRATROPIUM BROMIDE
     Indication: LUNG DISORDER
     Dosage: UNK, DAILY (3 NEBULIZER TREATMENTS DAILY)
     Dates: start: 2016
  17. MORPHINE [Concomitant]
     Active Substance: MORPHINE
     Indication: BACK PAIN

REACTIONS (10)
  - Weight increased [Recovering/Resolving]
  - Vision blurred [Not Recovered/Not Resolved]
  - Condition aggravated [Unknown]
  - Pain of skin [Not Recovered/Not Resolved]
  - Pruritus [Unknown]
  - Drug effect incomplete [Unknown]
  - Lung disorder [Unknown]
  - Sleep disorder [Not Recovered/Not Resolved]
  - Skin disorder [Not Recovered/Not Resolved]
  - Dyspnoea [Unknown]

NARRATIVE: CASE EVENT DATE: 2016
